FAERS Safety Report 8844355 (Version 2)
Quarter: 2012Q4

REPORT INFORMATION
  Report Type: 
  Country: US (occurrence: None)
  Receive Date: 20121016
  Receipt Date: 20121016
  Transmission Date: 20130627
  Serious: No
  Sender: FDA-Public Use
  Company Number: None

PATIENT
  Age: 51 Year
  Sex: Female
  Weight: 68.04 kg

DRUGS (1)
  1. TRIAMCINOLONE [Suspect]
     Indication: BACK PAIN
     Dosage: 2 ml?? twice so far IT
     Route: 038
     Dates: start: 20120716, end: 20120730

REACTIONS (10)
  - Rhinorrhoea [None]
  - Pyrexia [None]
  - Headache [None]
  - Loss of consciousness [None]
  - Rash [None]
  - Pruritus [None]
  - Fall [None]
  - Mycoplasma test positive [None]
  - Fungal skin infection [None]
  - Chest discomfort [None]
